FAERS Safety Report 19647527 (Version 1)
Quarter: 2021Q3

REPORT INFORMATION
  Report Type: Spontaneous
  Country: ES (occurrence: ES)
  Receive Date: 20210802
  Receipt Date: 20210802
  Transmission Date: 20211014
  Serious: Yes (Hospitalization)
  Sender: FDA-Public Use
  Company Number: ES-SUN PHARMACEUTICAL INDUSTRIES LTD-2021RR-306359

PATIENT
  Age: 52 Year
  Sex: Male

DRUGS (2)
  1. RIFAMPICINA (2273A) [Suspect]
     Active Substance: RIFAMPIN
     Indication: SKIN BACTERIAL INFECTION
     Dosage: RIFAMPICIN 300MG 2CP EVERY 24H ()
     Route: 048
     Dates: start: 20210628, end: 20210705
  2. CIPROFLOXACIN. [Suspect]
     Active Substance: CIPROFLOXACIN
     Indication: PRODUCT USED FOR UNKNOWN INDICATION
     Dosage: UNK
     Route: 065
     Dates: start: 20210628, end: 20210705

REACTIONS (2)
  - Myalgia [Recovered/Resolved]
  - Cutaneous vasculitis [Recovered/Resolved]

NARRATIVE: CASE EVENT DATE: 20210703
